FAERS Safety Report 22236105 (Version 5)
Quarter: 2024Q1

REPORT INFORMATION
  Report Type: Spontaneous
  Country: US (occurrence: US)
  Receive Date: 20230420
  Receipt Date: 20240307
  Transmission Date: 20240410
  Serious: No
  Sender: FDA-Public Use
  Company Number: US-PFIZER INC-PV202300071978

PATIENT
  Age: 69 Year
  Sex: Female

DRUGS (1)
  1. IBRANCE [Suspect]
     Active Substance: PALBOCICLIB
     Dosage: 125 MG

REACTIONS (2)
  - Dyspnoea [Unknown]
  - Cough [Unknown]
